FAERS Safety Report 9925015 (Version 1)
Quarter: 2014Q1

REPORT INFORMATION
  Report Type: Spontaneous
  Country: US (occurrence: None)
  Receive Date: 20140225
  Receipt Date: 20140225
  Transmission Date: 20141002
  Serious: Yes (Hospitalization)
  Sender: FDA-Public Use
  Company Number: None

PATIENT
  Sex: Male

DRUGS (1)
  1. AXIRON [Suspect]
     Indication: BLOOD TESTOSTERONE DECREASED
     Dosage: ONCE DAILY?APPLIED TO A SURFACE, USUALLY THE SKIN
     Route: 061
     Dates: start: 20131113

REACTIONS (1)
  - Pulmonary embolism [None]
